FAERS Safety Report 8023869-0 (Version None)
Quarter: 2012Q1

REPORT INFORMATION
  Report Type: 
  Country: None (occurrence: None)
  Receive Date: 20120105
  Receipt Date: 20111230
  Transmission Date: 20120608
  Serious: No
  Sender: FDA-Public Use
  Company Number: US-PFIZER INC-2012000885

PATIENT
  Sex: Female
  Weight: 110.2 kg

DRUGS (9)
  1. OMEPRAZOLE [Concomitant]
     Dosage: 20 MG, UNK
  2. POTASSIUM [Concomitant]
     Dosage: 75 MG, UNK
  3. LISINOPRIL [Concomitant]
     Dosage: 20 MG, UNK
  4. NORCO [Concomitant]
     Dosage: 5-325 MG
  5. SUTENT [Suspect]
     Dosage: 12.5 MG, 1X/DAY FOR 4 WEEKS ON AND OFF 2 WEEKS
     Route: 048
  6. MELOXICAM [Concomitant]
     Dosage: 7.5 MG, UNK
  7. STOOL SOFTENER [Concomitant]
     Dosage: 100 MG, UNK
  8. ALLOPURINOL [Concomitant]
     Dosage: 100 MG, UNK
  9. VITAMIN B-12 [Concomitant]
     Dosage: 1000 CR

REACTIONS (1)
  - STOMATITIS [None]
